FAERS Safety Report 4701057-0 (Version None)
Quarter: 2005Q2

REPORT INFORMATION
  Report Type: 
  Country: None (occurrence: None)
  Receive Date: 20050628
  Receipt Date: 20050317
  Transmission Date: 20051028
  Serious: Yes (Hospitalization)
  Sender: FDA-Public Use
  Company Number: BE-JNJFOC-20050205611

PATIENT
  Sex: Female

DRUGS (1)
  1. REMICADE [Suspect]
     Indication: RHEUMATOID ARTHRITIS
     Route: 042

REACTIONS (3)
  - CONDITION AGGRAVATED [None]
  - RHEUMATOID ARTHRITIS [None]
  - SYSTEMIC LUPUS ERYTHEMATOSUS [None]
